FAERS Safety Report 9810478 (Version 1)
Quarter: 2014Q1

REPORT INFORMATION
  Report Type: Spontaneous
  Country: US (occurrence: US)
  Receive Date: 20140110
  Receipt Date: 20140110
  Transmission Date: 20141002
  Serious: Yes (Other)
  Sender: FDA-Public Use
  Company Number: US-SANOFI-AVENTIS-2013SA084860

PATIENT
  Sex: Male

DRUGS (10)
  1. PLAVIX [Suspect]
     Indication: CORONARY ARTERIAL STENT INSERTION
     Route: 065
  2. VITAMIN K [Concomitant]
     Route: 065
  3. CALCIUM [Concomitant]
     Route: 065
  4. AMLODIPINE [Concomitant]
     Route: 065
  5. ALL OTHER THERAPEUTIC PRODUCTS [Concomitant]
     Route: 065
  6. MELATONIN [Concomitant]
     Route: 065
  7. TESTOSTERONE [Concomitant]
     Route: 065
  8. ARIMIDEX [Concomitant]
     Route: 065
  9. ASPIRIN [Concomitant]
     Route: 065
  10. AMBIEN [Concomitant]
     Route: 065

REACTIONS (4)
  - Thrombosis in device [Not Recovered/Not Resolved]
  - Drug ineffective [Not Recovered/Not Resolved]
  - Arterial occlusive disease [Unknown]
  - Drug ineffective [Unknown]
